FAERS Safety Report 5057369-7 (Version None)
Quarter: 2006Q3

REPORT INFORMATION
  Report Type: 
  Country: None (occurrence: None)
  Receive Date: 20060721
  Receipt Date: 20050830
  Transmission Date: 20061208
  Serious: Yes (Other)
  Sender: FDA-Public Use
  Company Number: US-GLAXOSMITHKLINE-A0572397A

PATIENT
  Age: 71 Year
  Sex: Male

DRUGS (9)
  1. AVANDIA [Suspect]
     Dosage: 4MG TWICE PER DAY
     Route: 048
     Dates: start: 20031001
  2. PLAVIX [Concomitant]
  3. PLETAL [Concomitant]
  4. LIPITOR [Concomitant]
  5. TRICOR [Concomitant]
  6. ZETIA [Concomitant]
  7. ZESTRIL [Concomitant]
  8. CARAFATE [Concomitant]
  9. PRILOSEC [Concomitant]

REACTIONS (1)
  - ANAEMIA [None]
